FAERS Safety Report 8068241-2 (Version None)
Quarter: 2012Q1

REPORT INFORMATION
  Report Type: 
  Country: None (occurrence: None)
  Receive Date: 20120124
  Receipt Date: 20110929
  Transmission Date: 20120608
  Serious: No
  Sender: FDA-Public Use
  Company Number: US-AMGEN-USASP2011050355

PATIENT
  Age: 84 Year
  Sex: Female

DRUGS (9)
  1. PROLIA [Suspect]
     Indication: OSTEOPOROSIS POSTMENOPAUSAL
     Dates: start: 20110801
  2. VITAMIN D [Concomitant]
     Dosage: UNK
  3. ISOSORBIDE DINITRATE [Concomitant]
  4. DILTIAZEM [Concomitant]
  5. CALCIUM [Concomitant]
  6. PANTOPRAZOLE [Concomitant]
     Dosage: UNK
  7. CARDIZEM [Concomitant]
  8. PLAVIX [Concomitant]
  9. LISINOPRIL [Concomitant]

REACTIONS (5)
  - MYALGIA [None]
  - SPINAL DISORDER [None]
  - CYSTITIS [None]
  - PAIN IN EXTREMITY [None]
  - BACK PAIN [None]
